FAERS Safety Report 8596441-1 (Version None)
Quarter: 2012Q3

REPORT INFORMATION
  Report Type: 
  Country: None (occurrence: None)
  Receive Date: 20120815
  Receipt Date: 20120808
  Transmission Date: 20120928
  Serious: Yes (Other)
  Sender: FDA-Public Use
  Company Number: SE-PFIZER INC-2012194190

PATIENT
  Age: 49 Year
  Sex: Female

DRUGS (2)
  1. LERGIGAN [Concomitant]
     Dosage: 25 MG, UNK
  2. TOVIAZ [Suspect]
     Indication: URINARY INCONTINENCE
     Dosage: 8 MG, 1X/DAY
     Dates: start: 20120215, end: 20120301

REACTIONS (7)
  - SUICIDAL IDEATION [None]
  - CONFUSIONAL STATE [None]
  - COUGH [None]
  - PALPITATIONS [None]
  - MENTAL IMPAIRMENT [None]
  - HALLUCINATION [None]
  - DRUG INTERACTION [None]
